FAERS Safety Report 5089406-8 (Version None)
Quarter: 2006Q3

REPORT INFORMATION
  Report Type: 
  Country: None (occurrence: None)
  Receive Date: 20060727
  Receipt Date: 20060511
  Transmission Date: 20061208
  Serious: Yes (Other)
  Sender: FDA-Public Use
  Company Number: 2006064076

PATIENT
  Age: 75 Year
  Sex: Female

DRUGS (2)
  1. LYRICA [Suspect]
     Indication: POST HERPETIC NEURALGIA
     Dosage: 600 MG (300 MG, 2 IN1 D)
     Dates: start: 20060201
  2. NEURONTIN [Concomitant]

REACTIONS (4)
  - BODY HEIGHT DECREASED [None]
  - OEDEMA PERIPHERAL [None]
  - PAIN [None]
  - WEIGHT INCREASED [None]
